FAERS Safety Report 10378088 (Version 1)
Quarter: 2014Q1

REPORT INFORMATION
  Report Type: Spontaneous
  Country: US (occurrence: None)
  Receive Date: 20140306
  Receipt Date: 20140306
  Transmission Date: 20141002
  Serious: Yes (Other)
  Sender: FDA-Public Use
  Company Number: 163-21880-13013666

PATIENT
  Age: 56 Year
  Sex: Male
  Weight: 133.36 kg

DRUGS (30)
  1. REVLIMID (LENALIDOMIDE) (25 MILLIGRAM, CAPSULES) [Suspect]
     Indication: PLASMA CELL MYELOMA
     Route: 048
     Dates: start: 20110326
  2. CIALIS (TADALAFIL) [Concomitant]
  3. TAMIFLU (OSELTAMIVIR) [Concomitant]
  4. PANTOPRAZOLE [Concomitant]
  5. AMLODIPINE [Concomitant]
  6. NOXAFIL (POSACONAZOLE) [Concomitant]
  7. ONDANSETRON [Concomitant]
  8. SOTALOL [Concomitant]
  9. AUGMENTIN [Concomitant]
  10. LEVOFLOXACIN [Concomitant]
  11. CARVEDILOL [Concomitant]
  12. ACYCLOVIR (ACICLOVIR) [Concomitant]
  13. LISINOPRIL [Concomitant]
  14. CIPROFLOXACIN [Concomitant]
  15. DOXYCYCLINE [Concomitant]
  16. TRIAMCINOLONE [Concomitant]
  17. FLUCONAZOLE [Concomitant]
  18. BACTRIM DS [Concomitant]
  19. VORICONAZOLE [Concomitant]
  20. OMEPRAZOLE [Concomitant]
  21. OXYCODONE-ACETAMINOPHEN (GALENIC/PARACETAMOL/CODEINE) [Concomitant]
  22. WARFARIN [Concomitant]
  23. HYDROMORPHONE [Concomitant]
  24. NYSTATIN [Concomitant]
  25. SENNA [Concomitant]
  26. CEFUROXIME [Concomitant]
  27. PLAVIX (CLOPIDOGREL SULFATE) [Concomitant]
  28. DAPSONE [Concomitant]
  29. VALACYCLOVIR (VALACICLOVIR HYDROCHLORIDE) [Concomitant]
  30. CRESTOR (ROSUVASTATIN) [Concomitant]

REACTIONS (1)
  - Neutropenia [None]
